FAERS Safety Report 6232766-2 (Version None)
Quarter: 2009Q2

REPORT INFORMATION
  Report Type: 
  Country: None (occurrence: None)
  Receive Date: 20090617
  Receipt Date: 20090319
  Transmission Date: 20091009
  Serious: No
  Sender: FDA-Public Use
  Company Number: US-BAYER-200916174NA

PATIENT
  Age: 46 Year
  Sex: Female

DRUGS (3)
  1. YAZ [Suspect]
     Indication: CONTRACEPTION
     Route: 048
     Dates: start: 20090301
  2. ADVIL [Concomitant]
     Indication: ARTHRITIS
     Dosage: TOTAL DAILY DOSE: 4 DF  UNIT DOSE: 1 DF
     Route: 048
  3. ALEVE [Concomitant]
     Indication: ARTHRITIS
     Route: 048

REACTIONS (4)
  - ADVERSE EVENT [None]
  - GENITAL BURNING SENSATION [None]
  - GENITAL PAIN [None]
  - HEADACHE [None]
